FAERS Safety Report 5185670-5 (Version None)
Quarter: 2006Q4

REPORT INFORMATION
  Report Type: 
  Country: None (occurrence: None)
  Receive Date: 20061220
  Receipt Date: 20060822
  Transmission Date: 20070319
  Serious: No
  Sender: FDA-Public Use
  Company Number: 2006062641

PATIENT
  Sex: Female

DRUGS (2)
  1. NIQUITIN CQ [Suspect]
     Indication: SMOKING CESSATION THERAPY
  2. NICOTINE [Suspect]
     Route: 055

REACTIONS (2)
  - INSOMNIA [None]
  - POOR QUALITY SLEEP [None]
